FAERS Safety Report 9042366 (Version 1)
Quarter: 2013Q1

REPORT INFORMATION
  Report Type: Report from Study
  Country: US (occurrence: US)
  Receive Date: 20130129
  Receipt Date: 20130129
  Transmission Date: 20140127
  Serious: No
  Sender: FDA-Public Use
  Company Number: US-ABBOTT-12P-163-0908605-00

PATIENT
  Sex: Female

DRUGS (4)
  1. HUMIRA 40 MG/0.8 ML PEN [Suspect]
     Indication: CROHN^S DISEASE
  2. HUMIRA 40 MG/0.8 ML PEN [Suspect]
     Dosage: TWO PENS AT ONCE
  3. HUMIRA 40 MG/0.8 ML PEN [Suspect]
  4. 6-MP [Concomitant]
     Indication: CROHN^S DISEASE

REACTIONS (2)
  - Crohn^s disease [Recovering/Resolving]
  - Frequent bowel movements [Recovering/Resolving]
